FAERS Safety Report 7029957-X (Version None)
Quarter: 2010Q3

REPORT INFORMATION
  Report Type: 
  Country: None (occurrence: None)
  Receive Date: 20100929
  Receipt Date: 20091112
  Transmission Date: 20110219
  Serious: Yes (Other)
  Sender: FDA-Public Use
  Company Number: 2009110002

PATIENT
  Age: 44 Year
  Sex: Female
  Weight: 93.8946 kg

DRUGS (3)
  1. FELBATOL [Suspect]
     Indication: PETIT MAL EPILEPSY
     Dosage: 1800 MG (600 MG, 3 IN 1 D), ORAL 1200 MG, (600 MG, 2 IN 1 D), ORAL
     Route: 048
     Dates: start: 20090630, end: 20091029
  2. TOPAMAX (TOPIRAMTATE) [Concomitant]
  3. TEGRETOL [Concomitant]

REACTIONS (8)
  - ABDOMINAL PAIN UPPER [None]
  - CHEST PAIN [None]
  - DECREASED APPETITE [None]
  - DIARRHOEA [None]
  - HYPOMENORRHOEA [None]
  - NAUSEA [None]
  - VOMITING [None]
  - WEIGHT DECREASED [None]
